FAERS Safety Report 15844501 (Version 2)
Quarter: 2019Q1

REPORT INFORMATION
  Report Type: Spontaneous
  Country: US (occurrence: US)
  Receive Date: 20190118
  Receipt Date: 20190228
  Transmission Date: 20190417
  Serious: No
  Sender: FDA-Public Use
  Company Number: US-ACTELION-A-US2019-185009

PATIENT
  Age: 11 Month
  Sex: Male

DRUGS (3)
  1. SYNAGIS [Concomitant]
     Active Substance: PALIVIZUMAB
     Dosage: 15 MG/KG, ONCE A MONTH
  2. TRACLEER [Suspect]
     Active Substance: BOSENTAN
     Indication: PULMONARY ARTERIAL HYPERTENSION
     Dosage: 16 MG, BID
     Route: 048
     Dates: start: 20190114
  3. REVATIO [Concomitant]
     Active Substance: SILDENAFIL CITRATE
     Dosage: 8.5 MG, TID

REACTIONS (2)
  - Device occlusion [Unknown]
  - Product use issue [Unknown]

NARRATIVE: CASE EVENT DATE: 20190114
